FAERS Safety Report 24598961 (Version 3)
Quarter: 2024Q4

REPORT INFORMATION
  Report Type: Report from Study
  Country: US (occurrence: US)
  Receive Date: 20241110
  Receipt Date: 20241126
  Transmission Date: 20250114
  Serious: No
  Sender: SANOFI AVENTIS
  Company Number: US-SA-2024SA307863

PATIENT
  Age: 54 Year
  Sex: Male

DRUGS (1)
  1. DUPIXENT [Suspect]
     Active Substance: DUPILUMAB
     Indication: Asthma
     Dosage: 300 MG, QOW
     Route: 058
     Dates: start: 20240703

REACTIONS (7)
  - Injection site irritation [Unknown]
  - Visual impairment [Not Recovered/Not Resolved]
  - Eye swelling [Not Recovered/Not Resolved]
  - Dry skin [Unknown]
  - Skin exfoliation [Unknown]
  - Keratitis [Unknown]
  - Eye irritation [Unknown]

NARRATIVE: CASE EVENT DATE: 20240101
